FAERS Safety Report 9507909 (Version 1)
Quarter: 2013Q1

REPORT INFORMATION
  Report Type: Spontaneous
  Country: US (occurrence: None)
  Receive Date: 20130305
  Receipt Date: 20130305
  Transmission Date: 20140127
  Serious: No
  Sender: FDA-Public Use
  Company Number: 163-21880-12030543

PATIENT
  Age: 62 Year
  Sex: Female
  Weight: 61.5 kg

DRUGS (2)
  1. REVLIMID [Suspect]
     Indication: PLASMA CELL MYELOMA
     Dosage: 10MG, DAILY X 21 DAYS Q 28 DAYS, PO
     Route: 048
     Dates: start: 20101005, end: 20110427
  2. LIPTOR (ATORVASTATIN) [Concomitant]

REACTIONS (1)
  - Granulocytes abnormal [None]
